FAERS Safety Report 7275112-8 (Version None)
Quarter: 2011Q1

REPORT INFORMATION
  Report Type: 
  Country: None (occurrence: None)
  Receive Date: 20110204
  Receipt Date: 20110124
  Transmission Date: 20110831
  Serious: Yes (Hospitalization)
  Sender: FDA-Public Use
  Company Number: PHHY2011TR05610

PATIENT
  Age: 70 Year
  Sex: Female
  Weight: 60 kg

DRUGS (2)
  1. ACLASTA [Suspect]
     Indication: OSTEOPOROSIS
     Dosage: 5 MG
     Route: 042
     Dates: start: 20110121
  2. CALCIUM WITH VITAMIN D [Concomitant]

REACTIONS (11)
  - PAIN [None]
  - HAEMOGLOBIN DECREASED [None]
  - BLOOD CALCIUM DECREASED [None]
  - PALPITATIONS [None]
  - CREATININE RENAL CLEARANCE DECREASED [None]
  - FATIGUE [None]
  - FEELING COLD [None]
  - BLOOD CREATININE INCREASED [None]
  - TREMOR [None]
  - DYSPNOEA [None]
  - BLOOD UREA INCREASED [None]
